FAERS Safety Report 20110786 (Version 2)
Quarter: 2022Q2

REPORT INFORMATION
  Report Type: Report from Study
  Country: BR (occurrence: BR)
  Receive Date: 20211124
  Receipt Date: 20220525
  Transmission Date: 20220720
  Serious: Yes (Other)
  Sender: FDA-Public Use
  Company Number: BR-ABBVIE-21K-020-4173902-00

PATIENT
  Age: 62 Year
  Sex: Female
  Weight: 74.5 kg

DRUGS (9)
  1. RINVOQ [Suspect]
     Active Substance: UPADACITINIB
     Indication: Rheumatoid arthritis
     Route: 048
     Dates: end: 20211107
  2. RINVOQ [Suspect]
     Active Substance: UPADACITINIB
     Route: 048
     Dates: start: 20211115, end: 2022
  3. RINVOQ [Suspect]
     Active Substance: UPADACITINIB
     Route: 048
     Dates: start: 2022, end: 20220504
  4. RINVOQ [Suspect]
     Active Substance: UPADACITINIB
     Route: 048
     Dates: start: 20220512
  5. COVID-19 VACCINE [Concomitant]
     Indication: COVID-19 immunisation
     Dosage: FIRST DOSE
     Route: 030
  6. COVID-19 VACCINE [Concomitant]
     Dosage: SECOND DOSE
     Route: 030
  7. COVID-19 VACCINE [Concomitant]
     Dosage: THIRD DOSE
     Route: 030
  8. COVID-19 VACCINE [Concomitant]
     Dosage: FOURTH DOSE
     Route: 030
     Dates: start: 20220427, end: 20220427
  9. INFLUENZA VIRUS VACCINE [Concomitant]
     Active Substance: INFLUENZA VIRUS VACCINE
     Indication: Product used for unknown indication
     Dates: start: 20220427, end: 20220427

REACTIONS (6)
  - Dental restoration failure [Recovered/Resolved]
  - Post procedural haemorrhage [Recovered/Resolved]
  - Dental implantation [Recovered/Resolved]
  - Procedural pain [Recovered/Resolved]
  - Arthralgia [Recovered/Resolved]
  - Pain in extremity [Recovered/Resolved]

NARRATIVE: CASE EVENT DATE: 20211101
